FAERS Safety Report 15034094 (Version 1)
Quarter: 2018Q2

REPORT INFORMATION
  Report Type: Report from Study
  Country: GB (occurrence: GB)
  Receive Date: 20180620
  Receipt Date: 20180620
  Transmission Date: 20180711
  Serious: Yes (Other)
  Sender: FDA-Public Use
  Company Number: GB-TEVA-2018-GB-909370

PATIENT
  Age: 13 Year
  Sex: Female

DRUGS (3)
  1. PREDNISOLONE. [Suspect]
     Active Substance: PREDNISOLONE
     Route: 065
  2. METFORMIN [Suspect]
     Active Substance: METFORMIN HYDROCHLORIDE
     Route: 065
  3. ORLISTAT. [Suspect]
     Active Substance: ORLISTAT
     Route: 065

REACTIONS (3)
  - Obesity [Recovering/Resolving]
  - Headache [Unknown]
  - Abdominal pain [Unknown]
